FAERS Safety Report 10690484 (Version 1)
Quarter: 2015Q1

REPORT INFORMATION
  Report Type: Spontaneous
  Country: US (occurrence: None)
  Receive Date: 20150102
  Receipt Date: 20150102
  Transmission Date: 20150720
  Serious: Yes (Disabling)
  Sender: FDA-Public Use
  Company Number: None

PATIENT
  Age: 39 Year
  Sex: Female
  Weight: 106.14 kg

DRUGS (1)
  1. TAMIFLU [Suspect]
     Active Substance: OSELTAMIVIR PHOSPHATE
     Indication: INFLUENZA
     Dosage: 1 PILL
     Route: 048

REACTIONS (7)
  - Anxiety [None]
  - Insomnia [None]
  - Quality of life decreased [None]
  - Head discomfort [None]
  - Anger [None]
  - Chest discomfort [None]
  - Flat affect [None]

NARRATIVE: CASE EVENT DATE: 20141225
